FAERS Safety Report 9450407 (Version 2)
Quarter: 2013Q3

REPORT INFORMATION
  Report Type: Spontaneous
  Country: GB (occurrence: None)
  Receive Date: 20130808
  Receipt Date: 20130814
  Transmission Date: 20140515
  Serious: Yes (Hospitalization, Disabling, Other)
  Sender: FDA-Public Use
  Company Number: AUR-APL-2013-06398

PATIENT
  Age: 57 Year
  Sex: Male

DRUGS (1)
  1. PRAMIPEXOLE [Suspect]
     Indication: RESTLESS LEGS SYNDROME
     Dosage: 180 MCG (180 MCG. 1 IN 1 D), ORAL
     Route: 048
     Dates: start: 2013, end: 20130704

REACTIONS (6)
  - Chronic hepatitis [None]
  - Drug-induced liver injury [None]
  - Hepatic failure [None]
  - Cholecystitis [None]
  - Cholelithiasis [None]
  - Carbohydrate antigen 19-9 increased [None]
